FAERS Safety Report 6443143-3 (Version None)
Quarter: 2009Q4

REPORT INFORMATION
  Report Type: 
  Country: None (occurrence: None)
  Receive Date: 20091117
  Receipt Date: 20091027
  Transmission Date: 20100525
  Serious: Yes (Hospitalization)
  Sender: FDA-Public Use
  Company Number: A0817082A

PATIENT
  Age: 86 Year
  Sex: Male

DRUGS (7)
  1. ALKERAN [Suspect]
     Indication: DRUG USE FOR UNKNOWN INDICATION
  2. REVLIMID [Suspect]
     Indication: MULTIPLE MYELOMA
     Dosage: 10MG PER DAY
     Route: 048
     Dates: start: 20090501
  3. PREDNISONE [Suspect]
     Indication: DRUG USE FOR UNKNOWN INDICATION
  4. PROCRIT [Concomitant]
  5. MS CONTIN [Concomitant]
  6. MORPHINE [Concomitant]
  7. ANTICOAGULANTS (UNSPECIFIED) [Concomitant]

REACTIONS (3)
  - BACK PAIN [None]
  - FEBRILE NEUTROPENIA [None]
  - PANCYTOPENIA [None]
